FAERS Safety Report 24010704 (Version 1)
Quarter: 2024Q2

REPORT INFORMATION
  Report Type: Spontaneous
  Country: CN (occurrence: CN)
  Receive Date: 20240625
  Receipt Date: 20240625
  Transmission Date: 20240715
  Serious: Yes (Other)
  Sender: FDA-Public Use
  Company Number: CN-PFIZER INC-PV202400082220

PATIENT
  Age: 52 Year
  Sex: Female
  Weight: 50 kg

DRUGS (1)
  1. LORLATINIB [Suspect]
     Active Substance: LORLATINIB
     Indication: Targeted cancer therapy
     Dosage: 100 MG, 1X/DAY
     Route: 048
     Dates: start: 20240320, end: 20240524

REACTIONS (2)
  - Oedema [Recovering/Resolving]
  - Hydrothorax [Recovering/Resolving]

NARRATIVE: CASE EVENT DATE: 20240524
